FAERS Safety Report 20907232 (Version 1)
Quarter: 2022Q2

REPORT INFORMATION
  Report Type: Spontaneous
  Country: US (occurrence: US)
  Receive Date: 20220602
  Receipt Date: 20220602
  Transmission Date: 20220720
  Serious: No
  Sender: FDA-Public Use
  Company Number: US-BRISTOL-MYERS SQUIBB COMPANY-2022-039671

PATIENT
  Age: 69 Year
  Sex: Male
  Weight: 81.65 kg

DRUGS (2)
  1. REVLIMID [Suspect]
     Active Substance: LENALIDOMIDE
     Indication: Plasma cell myeloma
     Dosage: DOSE : WAS 10 MG, NOW 5 MG.;     FREQ : 21 DAYS ON, 7 DAYS OFF.
     Route: 048
  2. Lomotil 2.5 mg - 0.025 mg [Concomitant]
     Indication: Product used for unknown indication

REACTIONS (2)
  - White blood cell disorder [Unknown]
  - Neutrophil count abnormal [Unknown]
